FAERS Safety Report 5306914-2 (Version None)
Quarter: 2007Q2

REPORT INFORMATION
  Report Type: 
  Country: None (occurrence: None)
  Receive Date: 20070425
  Receipt Date: 20070423
  Transmission Date: 20071010
  Serious: Yes (Death, Hospitalization)
  Sender: FDA-Public Use
  Company Number: US-BRISTOL-MYERS SQUIBB COMPANY-13439310

PATIENT
  Age: 72 Year
  Sex: Female

DRUGS (3)
  1. BLINDED: APIXABAN [Suspect]
     Indication: ACUTE CORONARY SYNDROME
     Dosage: DOSING IS 6 TABLETS.
     Route: 048
     Dates: start: 20060602, end: 20060708
  2. BLINDED: PLACEBO [Suspect]
     Route: 048
     Dates: start: 20060102, end: 20060708
  3. DEMADEX [Suspect]
     Dates: start: 20020101

REACTIONS (5)
  - DIALYSIS [None]
  - HYPOTENSION [None]
  - ISCHAEMIA [None]
  - RENAL FAILURE ACUTE [None]
  - SUPRAVENTRICULAR TACHYCARDIA [None]
